FAERS Safety Report 20687682 (Version 11)
Quarter: 2023Q2

REPORT INFORMATION
  Report Type: Spontaneous
  Country: PE (occurrence: PE)
  Receive Date: 20220408
  Receipt Date: 20230621
  Transmission Date: 20230721
  Serious: Yes (Other)
  Sender: FDA-Public Use
  Company Number: PE-PFIZER INC-202200482942

PATIENT
  Age: 62 Year
  Sex: Female

DRUGS (4)
  1. ENBREL [Suspect]
     Active Substance: ETANERCEPT
     Indication: Rheumatoid arthritis
     Dosage: 50 MILLIGRAM, QWK
     Route: 058
  2. LEVOTHYROXINE [Concomitant]
     Active Substance: LEVOTHYROXINE
     Indication: Hypothyroidism
     Dosage: 0.5 DOSAGE FORM, QD
  3. PREDNISONE [Concomitant]
     Active Substance: PREDNISONE
     Indication: Rheumatoid arthritis
     Dosage: 5 MILLIGRAM, QD
  4. TRAMADOL [Concomitant]
     Active Substance: TRAMADOL
     Dosage: UNK

REACTIONS (32)
  - Haemorrhage [Not Recovered/Not Resolved]
  - Dyspnoea [Not Recovered/Not Resolved]
  - Wheezing [Not Recovered/Not Resolved]
  - Decreased immune responsiveness [Unknown]
  - Pain in extremity [Not Recovered/Not Resolved]
  - Eye pain [Not Recovered/Not Resolved]
  - Productive cough [Not Recovered/Not Resolved]
  - Dry skin [Not Recovered/Not Resolved]
  - Arthralgia [Unknown]
  - Ocular hyperaemia [Not Recovered/Not Resolved]
  - Bronchial disorder [Unknown]
  - Choking sensation [Unknown]
  - Hypersensitivity [Not Recovered/Not Resolved]
  - Gastric disorder [Recovered/Resolved]
  - Weight decreased [Recovering/Resolving]
  - Eating disorder [Recovered/Resolved]
  - Stress [Unknown]
  - Anxiety [Unknown]
  - Psychiatric symptom [Unknown]
  - Nocturnal fear [Unknown]
  - Depressed mood [Unknown]
  - Abdominal pain [Unknown]
  - Thyroid disorder [Unknown]
  - Blood glucose increased [Unknown]
  - Intentional product misuse [Unknown]
  - Insomnia [Unknown]
  - General physical health deterioration [Unknown]
  - Aphonia [Unknown]
  - Agitation [Unknown]
  - Alopecia [Unknown]
  - Influenza [Unknown]
  - Drug ineffective [Unknown]

NARRATIVE: CASE EVENT DATE: 20190101
